FAERS Safety Report 20790578 (Version 2)
Quarter: 2022Q2

REPORT INFORMATION
  Report Type: Report from Study
  Country: CA (occurrence: CA)
  Receive Date: 20220505
  Receipt Date: 20220614
  Transmission Date: 20220721
  Serious: Yes (Other)
  Sender: FDA-Public Use
  Company Number: CA-JNJFOC-20220503130

PATIENT
  Sex: Male
  Weight: 82 kg

DRUGS (1)
  1. REMICADE [Suspect]
     Active Substance: INFLIXIMAB
     Indication: Colitis ulcerative
     Dosage: DOSE IS LESS THAN 5MG/KG AS PER CURRENT WEIGHT
     Route: 042

REACTIONS (2)
  - Colon cancer [Unknown]
  - Off label use [Unknown]
